FAERS Safety Report 6263552-5 (Version None)
Quarter: 2009Q3

REPORT INFORMATION
  Report Type: 
  Country: None (occurrence: None)
  Receive Date: 20090710
  Receipt Date: 20090416
  Transmission Date: 20100115
  Serious: No
  Sender: FDA-Public Use
  Company Number: A0779206A

PATIENT
  Age: 28 Year
  Sex: Female

DRUGS (6)
  1. TYKERB [Suspect]
     Indication: BREAST CANCER
     Dosage: 5TAB SINGLE DOSE
     Route: 048
     Dates: start: 20090409, end: 20090409
  2. AROMASIN [Concomitant]
  3. OXYCODONE HCL [Concomitant]
  4. PROMETHAZINE [Concomitant]
  5. LORAZEPAM [Concomitant]
  6. KYTRIL [Concomitant]

REACTIONS (2)
  - ASTHENIA [None]
  - DIARRHOEA [None]
